FAERS Safety Report 6275329-5 (Version None)
Quarter: 2009Q3

REPORT INFORMATION
  Report Type: 
  Country: None (occurrence: None)
  Receive Date: 20090721
  Receipt Date: 20090713
  Transmission Date: 20100115
  Serious: Yes (Death)
  Sender: FDA-Public Use
  Company Number: B0582652A

PATIENT
  Sex: Female

DRUGS (2)
  1. AUGMENTIN '125' [Suspect]
     Indication: PROPHYLAXIS
     Dosage: 2000MG PER DAY
     Route: 042
     Dates: start: 20090609, end: 20090609
  2. DEXAMETHASONE [Concomitant]
     Indication: PROPHYLAXIS

REACTIONS (6)
  - ACUTE PULMONARY OEDEMA [None]
  - ANAPHYLACTIC SHOCK [None]
  - BRADYCARDIA [None]
  - CARDIAC ARREST [None]
  - HYPOTENSION [None]
  - PO2 DECREASED [None]
